FAERS Safety Report 6373577-7 (Version None)
Quarter: 2009Q3

REPORT INFORMATION
  Report Type: 
  Country: None (occurrence: None)
  Receive Date: 20090924
  Receipt Date: 20090320
  Transmission Date: 20100115
  Serious: Yes (Other)
  Sender: FDA-Public Use
  Company Number: US-ASTRAZENECA-2009UW05089

PATIENT
  Age: 39 Year
  Sex: Male
  Weight: 99.8 kg

DRUGS (13)
  1. SEROQUEL [Suspect]
     Indication: SLEEP DISORDER
     Route: 048
  2. SEROQUEL [Suspect]
     Indication: BIPOLAR DISORDER
     Route: 048
  3. SEROQUEL [Suspect]
     Indication: MIGRAINE
     Route: 048
  4. SEROQUEL [Suspect]
     Route: 048
  5. SEROQUEL [Suspect]
     Route: 048
  6. SEROQUEL [Suspect]
     Route: 048
  7. SEROQUEL [Suspect]
     Dosage: TOOK TEN 50 MG TABS
     Route: 048
     Dates: start: 20090221
  8. SEROQUEL [Suspect]
     Dosage: TOOK TEN 50 MG TABS
     Route: 048
     Dates: start: 20090221
  9. SEROQUEL [Suspect]
     Dosage: TOOK TEN 50 MG TABS
     Route: 048
     Dates: start: 20090221
  10. SEROQUEL [Suspect]
     Dosage: TOOK SEVEN 50 MG TABS
     Route: 048
     Dates: start: 20090222
  11. SEROQUEL [Suspect]
     Dosage: TOOK SEVEN 50 MG TABS
     Route: 048
     Dates: start: 20090222
  12. SEROQUEL [Suspect]
     Dosage: TOOK SEVEN 50 MG TABS
     Route: 048
     Dates: start: 20090222
  13. CYMBALTA [Concomitant]
     Route: 048

REACTIONS (5)
  - CONFUSIONAL STATE [None]
  - DIARRHOEA [None]
  - HEADACHE [None]
  - INCORRECT DOSE ADMINISTERED [None]
  - LETHARGY [None]
